FAERS Safety Report 13130587 (Version 5)
Quarter: 2017Q3

REPORT INFORMATION
  Report Type: Spontaneous
  Country: JP (occurrence: JP)
  Receive Date: 20170119
  Receipt Date: 20170724
  Transmission Date: 20171127
  Serious: Yes (Hospitalization)
  Sender: FDA-Public Use
  Company Number: JP-JNJFOC-20161101945

PATIENT
  Age: 1 Year
  Sex: Female

DRUGS (7)
  1. BCG [Suspect]
     Active Substance: BCG VACCINE
     Indication: PRODUCT USED FOR UNKNOWN INDICATION
     Route: 065
  2. PREDONINE [Concomitant]
     Active Substance: PREDNISOLONE
     Indication: KAWASAKI^S DISEASE
     Route: 065
     Dates: start: 20130405, end: 20130412
  3. REMICADE [Suspect]
     Active Substance: INFLIXIMAB
     Indication: KAWASAKI^S DISEASE
     Route: 042
     Dates: start: 20130409, end: 20130409
  4. DIAPP [Concomitant]
     Active Substance: DIAZEPAM
     Route: 065
  5. VENILON [Concomitant]
     Active Substance: HUMAN IMMUNOGLOBULIN G
     Indication: KAWASAKI^S DISEASE
     Route: 042
     Dates: start: 20130408, end: 20130409
  6. ASPIRIN. [Concomitant]
     Active Substance: ASPIRIN
     Dosage: 40MG/DAY
     Route: 048
  7. VENILON [Concomitant]
     Active Substance: HUMAN IMMUNOGLOBULIN G
     Indication: KAWASAKI^S DISEASE
     Dosage: DOSE: 2G/KG
     Route: 042
     Dates: start: 20130405, end: 20130406

REACTIONS (10)
  - Impaired healing [Recovering/Resolving]
  - Dermatitis psoriasiform [Recovered/Resolved]
  - Bacterial infection [Recovering/Resolving]
  - Fungal infection [Recovering/Resolving]
  - Product use issue [Unknown]
  - Off label use [Unknown]
  - Pyrexia [Recovered/Resolved]
  - Hyperkeratosis [Recovered/Resolved]
  - Papule [Recovering/Resolving]
  - Dermatitis [Unknown]

NARRATIVE: CASE EVENT DATE: 2013
